FAERS Safety Report 8265117-2 (Version None)
Quarter: 2012Q2

REPORT INFORMATION
  Report Type: 
  Country: None (occurrence: None)
  Receive Date: 20120406
  Receipt Date: 20120403
  Transmission Date: 20120825
  Serious: Yes (Death, Hospitalization, Other)
  Sender: FDA-Public Use
  Company Number: US-PFIZER INC-2011292223

PATIENT
  Sex: Male

DRUGS (2)
  1. CHANTIX [Suspect]
     Indication: SMOKING CESSATION THERAPY
     Dosage: STARTER PACK AND CONTINUING PACK
     Dates: start: 20070723, end: 20070901
  2. CHANTIX [Suspect]
     Dosage: STARTER PACK AND CONTINUING PACK
     Dates: start: 20081101, end: 20081101

REACTIONS (4)
  - SUICIDE ATTEMPT [None]
  - DEPRESSION [None]
  - COMPLETED SUICIDE [None]
  - AGGRESSION [None]
